FAERS Safety Report 7599637-0 (Version None)
Quarter: 2011Q2

REPORT INFORMATION
  Report Type: 
  Country: None (occurrence: None)
  Receive Date: 20110623
  Receipt Date: 20110615
  Transmission Date: 20111010
  Serious: Yes (Hospitalization)
  Sender: FDA-Public Use
  Company Number: AEUSA201100153

PATIENT
  Age: 1 Day

DRUGS (1)
  1. HYPERRHO [Suspect]
     Indication: PROPHYLAXIS AGAINST RH ISOIMMUNISATION
     Dosage: 1500 IU, 1X, IM
     Route: 030
     Dates: start: 20110328, end: 20110328

REACTIONS (3)
  - RHESUS HAEMOLYTIC DISEASE OF NEWBORN [None]
  - SMALL FOR DATES BABY [None]
  - MATERNAL DRUGS AFFECTING FOETUS [None]
